FAERS Safety Report 16212703 (Version 1)
Quarter: 2019Q2

REPORT INFORMATION
  Report Type: Spontaneous
  Country: US (occurrence: US)
  Receive Date: 20190418
  Receipt Date: 20190418
  Transmission Date: 20190711
  Serious: No
  Sender: FDA-Public Use
  Company Number: US-ASTELLAS-2018US033548

PATIENT
  Age: 82 Year
  Sex: Female
  Weight: 107 kg

DRUGS (1)
  1. LEXISCAN [Suspect]
     Active Substance: REGADENOSON
     Indication: ANGINA PECTORIS
     Dosage: UNK, UNKNOWN FREQ.
     Route: 065
     Dates: start: 20180220, end: 20180220

REACTIONS (5)
  - Pain in extremity [Recovered/Resolved]
  - Gait inability [Recovered/Resolved]
  - Chills [Recovered/Resolved]
  - Back pain [Recovered/Resolved]
  - Vomiting [Recovered/Resolved]

NARRATIVE: CASE EVENT DATE: 20180220
